FAERS Safety Report 15854868 (Version 4)
Quarter: 2019Q2

REPORT INFORMATION
  Report Type: Spontaneous
  Country: JP (occurrence: JP)
  Receive Date: 20190122
  Receipt Date: 20190529
  Transmission Date: 20190711
  Serious: Yes (Death, Life-Threatening)
  Sender: FDA-Public Use
  Company Number: JP-CELGENEUS-JPN-20190105955

PATIENT
  Age: 83 Year
  Sex: Male
  Weight: 52.8 kg

DRUGS (8)
  1. ELNEOPA [Concomitant]
     Active Substance: AMINO ACIDS\DEXTROSE\ELECTROLYTES NOS\MINERALS\VITAMINS
     Indication: NUTRITIONAL SUPPLEMENTATION
     Dosage: 2000 MILLILITER
     Route: 041
     Dates: start: 20190105, end: 20190129
  2. DAIKENCHUTO [Concomitant]
     Active Substance: HERBALS
     Indication: ABDOMINAL DISTENSION
     Dosage: 7.5 GRAM
     Route: 048
     Dates: start: 20190111, end: 20190127
  3. MAGMITT [Concomitant]
     Active Substance: MAGNESIUM OXIDE
     Indication: CONSTIPATION
     Dosage: 1500 MILLIGRAM
     Route: 048
     Dates: start: 20190111, end: 20190129
  4. RASURITEK [Concomitant]
     Active Substance: RASBURICASE
     Indication: PROPHYLAXIS
     Dosage: 9 MILLIGRAM
     Route: 041
     Dates: start: 20190116, end: 20190116
  5. ISTODAX [Suspect]
     Active Substance: ROMIDEPSIN
     Dosage: 12 MILLIGRAM
     Route: 041
     Dates: start: 20190123, end: 20190123
  6. FUROSEMIDE. [Concomitant]
     Active Substance: FUROSEMIDE
     Indication: FLUID RETENTION
     Dosage: 20 MILLIGRAM
     Route: 041
     Dates: start: 20190116, end: 20190116
  7. ISTODAX [Suspect]
     Active Substance: ROMIDEPSIN
     Indication: ENTEROPATHY-ASSOCIATED T-CELL LYMPHOMA
     Dosage: 17 MILLIGRAM
     Route: 041
     Dates: start: 20190116, end: 20190116
  8. PANTOL [Concomitant]
     Active Substance: DEXPANTHENOL
     Indication: ILEUS PARALYTIC
     Dosage: 2000 MILLIGRAM
     Route: 041
     Dates: start: 20190105, end: 20190117

REACTIONS (2)
  - Atrial fibrillation [Recovered/Resolved]
  - Enteropathy-associated T-cell lymphoma [Fatal]

NARRATIVE: CASE EVENT DATE: 20190116
